FAERS Safety Report 4368697-2 (Version None)
Quarter: 2004Q2

REPORT INFORMATION
  Report Type: 
  Country: None (occurrence: None)
  Receive Date: 20040528
  Receipt Date: 20040518
  Transmission Date: 20050107
  Serious: Yes (Other)
  Sender: FDA-Public Use
  Company Number: JP-JNJFOC-20040503065

PATIENT
  Age: 27 Year
  Sex: Male

DRUGS (7)
  1. RISPERDAL [Suspect]
     Indication: SCHIZOPHRENIA
     Dosage: SEE IMAGE
     Route: 048
     Dates: start: 20011115, end: 20040420
  2. RISPERDAL [Suspect]
     Indication: SCHIZOPHRENIA
     Dosage: SEE IMAGE
     Route: 048
     Dates: start: 20040421, end: 20040425
  3. RISPERDAL [Suspect]
     Indication: SCHIZOPHRENIA
     Dosage: SEE IMAGE
     Route: 048
     Dates: start: 20040426, end: 20040505
  4. TRIHEXYPHENIDYL HCL [Concomitant]
  5. NITRAZEPAM [Concomitant]
  6. LEVOMEPROMAZINE MALEATE (LEVOMEPROMAZINE MALEATE) [Concomitant]
  7. ZOPICLONE (ZOPICLONE) [Concomitant]

REACTIONS (6)
  - CHEST DISCOMFORT [None]
  - OCULOGYRATION [None]
  - SINUS ARRHYTHMIA [None]
  - SOMNOLENCE [None]
  - SPEECH DISORDER [None]
  - TREMOR [None]
